FAERS Safety Report 6448891-7 (Version None)
Quarter: 2009Q4

REPORT INFORMATION
  Report Type: 
  Country: None (occurrence: None)
  Receive Date: 20091120
  Receipt Date: 20091109
  Transmission Date: 20100525
  Serious: Yes (Other)
  Sender: FDA-Public Use
  Company Number: GB-PFIZER INC-2009295295

PATIENT
  Sex: Male

DRUGS (1)
  1. PHENYTOIN AND PHENYTOIN SODIUM [Suspect]
     Indication: EPILEPSY
     Dosage: 300 MG, 1X/DAY

REACTIONS (1)
  - INFERTILITY MALE [None]
